FAERS Safety Report 8397410-7 (Version None)
Quarter: 2012Q2

REPORT INFORMATION
  Report Type: 
  Country: None (occurrence: None)
  Receive Date: 20120531
  Receipt Date: 20120525
  Transmission Date: 20120825
  Serious: Yes (Hospitalization)
  Sender: FDA-Public Use
  Company Number: NZ-AMGEN-NZLSP2012029922

PATIENT
  Age: 63 Year
  Sex: Male
  Weight: 66 kg

DRUGS (10)
  1. ETOPOSIDE [Concomitant]
     Indication: PERIPHERAL T-CELL LYMPHOMA UNSPECIFIED
     Dosage: UNK
     Dates: start: 20120321, end: 20120323
  2. METFORMIN HYDROCHLORIDE [Concomitant]
     Indication: TYPE 2 DIABETES MELLITUS
     Dosage: 1 G, UNK
     Route: 048
  3. ACYCLOVIR [Concomitant]
     Indication: PROPHYLAXIS
     Dosage: 400 MG, BID
     Route: 048
  4. CYCLOPHOSPHAMIDE [Concomitant]
     Indication: PERIPHERAL T-CELL LYMPHOMA UNSPECIFIED
  5. OMEPRAZOLE [Concomitant]
     Indication: PROPHYLAXIS AGAINST GASTROINTESTINAL ULCER
     Dosage: 40 MG, QD
     Route: 048
  6. NEULASTIM [Suspect]
     Indication: PROPHYLAXIS
     Dosage: 6 MG, PER CHEMO REGIM
     Route: 058
     Dates: start: 20120325
  7. VINCRISTINE [Concomitant]
     Indication: PERIPHERAL T-CELL LYMPHOMA UNSPECIFIED
     Dosage: UNK
     Dates: start: 20120321, end: 20120323
  8. DOXORUBICIN HCL [Concomitant]
     Indication: PERIPHERAL T-CELL LYMPHOMA UNSPECIFIED
     Dosage: UNK
     Dates: start: 20120321, end: 20120323
  9. PREDNISONE TAB [Concomitant]
     Indication: PERIPHERAL T-CELL LYMPHOMA UNSPECIFIED
     Dosage: UNK
     Dates: start: 20120321, end: 20120322
  10. COTRIM [Concomitant]
     Indication: PNEUMOCYSTIS JIROVECI PNEUMONIA
     Route: 048

REACTIONS (2)
  - FEBRILE NEUTROPENIA [None]
  - DRUG INEFFECTIVE [None]
